FAERS Safety Report 4431805-9 (Version None)
Quarter: 2004Q3

REPORT INFORMATION
  Report Type: 
  Country: None (occurrence: None)
  Receive Date: 20040825
  Receipt Date: 20040820
  Transmission Date: 20050211
  Serious: Yes (Other)
  Sender: FDA-Public Use
  Company Number: 200418271GDDC

PATIENT
  Age: 29 Year
  Sex: Female

DRUGS (1)
  1. CLOMID [Suspect]
     Indication: OVARIAN FAILURE

REACTIONS (1)
  - MYOCARDIAL INFARCTION [None]
